FAERS Safety Report 5342053-2 (Version None)
Quarter: 2007Q2

REPORT INFORMATION
  Report Type: 
  Country: None (occurrence: None)
  Receive Date: 20070601
  Receipt Date: 20070528
  Transmission Date: 20071010
  Serious: Yes (Hospitalization, Other)
  Sender: FDA-Public Use
  Company Number: FR-BRISTOL-MYERS SQUIBB COMPANY-13795869

PATIENT
  Age: 53 Year
  Sex: Female

DRUGS (6)
  1. PRAVADUAL TABS 81 MG/40 MG [Suspect]
     Route: 048
     Dates: start: 20061220, end: 20070110
  2. TIMOFEROL [Suspect]
     Route: 048
     Dates: start: 20061220, end: 20070110
  3. IXEL [Concomitant]
  4. PARIET [Concomitant]
     Route: 048
  5. IRBESARTAN AND HYDROCHLOROTHIAZIDE [Concomitant]
     Route: 048
  6. FUMAFER [Concomitant]

REACTIONS (2)
  - CUTANEOUS VASCULITIS [None]
  - HENOCH-SCHONLEIN PURPURA [None]
